FAERS Safety Report 8841219 (Version 1)
Quarter: 2012Q4

REPORT INFORMATION
  Report Type: 
  Country: US (occurrence: US)
  Receive Date: 20121015
  Receipt Date: 20121015
  Transmission Date: 20130627
  Serious: No
  Sender: FDA-Public Use
  Company Number: US-ASTRAZENECA-2012SE72692

PATIENT

DRUGS (2)
  1. SEROQUEL [Suspect]
     Dosage: 25 MG, UNKNOWN FREQUENCY
     Route: 048
     Dates: start: 2005, end: 201209
  2. SEROQUEL [Suspect]
     Dosage: 600 TO 800 MG, UNKNOWN FREQUENCY
     Route: 048

REACTIONS (3)
  - Insomnia [Unknown]
  - Hypersomnia [Unknown]
  - Drug dose omission [Unknown]
